FAERS Safety Report 19115352 (Version 3)
Quarter: 2021Q3

REPORT INFORMATION
  Report Type: Spontaneous
  Country: US (occurrence: US)
  Receive Date: 20210409
  Receipt Date: 20210902
  Transmission Date: 20211014
  Serious: Yes (Hospitalization, Other)
  Sender: FDA-Public Use
  Company Number: US-DRREDDYS-USA/USA/21/0133802

PATIENT
  Age: 85 Year
  Sex: Female
  Weight: 50.8 kg

DRUGS (9)
  1. ATORVASTATIN [Suspect]
     Active Substance: ATORVASTATIN
     Indication: CARDIOMYOPATHY
     Route: 048
  2. TAFAMIDIS [Interacting]
     Active Substance: TAFAMIDIS MEGLUMINE
     Indication: AMYLOIDOSIS SENILE
  3. TAFAMIDIS [Interacting]
     Active Substance: TAFAMIDIS MEGLUMINE
     Indication: CARDIOMYOPATHY
     Route: 048
  4. APIXABAN [Concomitant]
     Active Substance: APIXABAN
     Indication: CARDIOMYOPATHY
  5. TORSEMIDE. [Concomitant]
     Active Substance: TORSEMIDE
     Indication: CARDIOMYOPATHY
  6. ATORVASTATIN [Interacting]
     Active Substance: ATORVASTATIN
     Indication: AMYLOIDOSIS SENILE
  7. AMIODARONE [Interacting]
     Active Substance: AMIODARONE
     Indication: CARDIOMYOPATHY
     Route: 048
  8. APIXABAN [Concomitant]
     Active Substance: APIXABAN
     Indication: AMYLOIDOSIS SENILE
  9. TORSEMIDE. [Concomitant]
     Active Substance: TORSEMIDE
     Indication: AMYLOIDOSIS SENILE

REACTIONS (4)
  - Aspartate aminotransferase increased [Recovered/Resolved]
  - Rhabdomyolysis [Recovering/Resolving]
  - Drug interaction [Recovering/Resolving]
  - Alanine aminotransferase increased [Recovered/Resolved]
